FAERS Safety Report 19583631 (Version 1)
Quarter: 2021Q3

REPORT INFORMATION
  Report Type: Spontaneous
  Country: US (occurrence: US)
  Receive Date: 20210720
  Receipt Date: 20210720
  Transmission Date: 20211014
  Serious: No
  Sender: FDA-Public Use
  Company Number: US-PFIZER INC-2021378806

PATIENT
  Age: 61 Year
  Sex: Female
  Weight: 130.18 kg

DRUGS (4)
  1. PHENOBARBITAL. [Concomitant]
     Active Substance: PHENOBARBITAL
     Indication: SEIZURE
     Dosage: 60 MG, 3X/DAY
  2. PHENYTOIN. [Suspect]
     Active Substance: PHENYTOIN
     Indication: SEIZURE
     Dosage: 100 MG, 3X/DAY (ONE AT 8:00 ONE AT 3:00 AND 11:00)
     Route: 048
  3. LEVETIRACETAM. [Concomitant]
     Active Substance: LEVETIRACETAM
     Dosage: 750 MG, 4X/DAY (TWO IN THE MORNING AND TWO AT NIGHT)
     Dates: start: 2020
  4. DILANTIN [Suspect]
     Active Substance: PHENYTOIN
     Indication: SEIZURE
     Dosage: UNK

REACTIONS (5)
  - Illness [Recovering/Resolving]
  - Tooth fracture [Not Recovered/Not Resolved]
  - Mastication disorder [Not Recovered/Not Resolved]
  - Tongue haemorrhage [Recovered/Resolved]
  - Tongue biting [Recovered/Resolved]

NARRATIVE: CASE EVENT DATE: 20210328
